FAERS Safety Report 16687384 (Version 1)
Quarter: 2019Q3

REPORT INFORMATION
  Report Type: Spontaneous
  Country: US (occurrence: US)
  Receive Date: 20190809
  Receipt Date: 20190809
  Transmission Date: 20191004
  Serious: No
  Sender: FDA-Public Use
  Company Number: US-TARO-2018TAR00793

PATIENT
  Sex: Male
  Weight: 79.37 kg

DRUGS (7)
  1. WARFARIN SODIUM TABLETS USP 5MG [Suspect]
     Active Substance: WARFARIN SODIUM
     Dosage: 5 MG, 1X/DAY
     Route: 048
     Dates: start: 201810
  2. WARFARIN SODIUM TABLETS USP 5MG [Suspect]
     Active Substance: WARFARIN SODIUM
     Indication: THROMBOSIS
     Dosage: 2.5 MG, 2X/WEEK (ALONG WITH HALF OF A 6 MG TABLET FOR A TOTAL DOSE OF 5.5 MG)
     Route: 048
     Dates: start: 2018, end: 201810
  3. WARFARIN SODIUM TABLETS USP 6MG [Suspect]
     Active Substance: WARFARIN SODIUM
     Indication: THROMBOSIS
     Dosage: 6 MG, 1X/DAY
     Route: 048
     Dates: end: 2018
  4. DONEPEZIL. [Concomitant]
     Active Substance: DONEPEZIL
     Dosage: 5 MG, 1X/DAY IN THE EVENING
     Dates: start: 2015, end: 201810
  5. WARFARIN SODIUM TABLETS USP 6MG [Suspect]
     Active Substance: WARFARIN SODIUM
     Dosage: 3 MG, 2X/WEEK (ALONG WITH A HALF TABLET OF 5 MG STRENGTH FOR TOTAL DOSE OF 5.5 MG)
     Route: 048
     Dates: start: 2018, end: 201810
  6. WARFARIN SODIUM TABLETS USP 5MG [Suspect]
     Active Substance: WARFARIN SODIUM
     Dosage: 5 MG, 5X/WEEK
     Route: 048
     Dates: start: 2018, end: 201810
  7. LEVOTHYROXINE. [Concomitant]
     Active Substance: LEVOTHYROXINE
     Dosage: 100 ?G, 1X/DAY IN THE MORNING
     Dates: start: 1998

REACTIONS (3)
  - Intentional product use issue [Not Recovered/Not Resolved]
  - Product storage error [Not Recovered/Not Resolved]
  - International normalised ratio increased [Not Recovered/Not Resolved]

NARRATIVE: CASE EVENT DATE: 2018
